FAERS Safety Report 9641321 (Version 1)
Quarter: 2013Q4

REPORT INFORMATION
  Report Type: Spontaneous
  Country: US (occurrence: US)
  Receive Date: 20131023
  Receipt Date: 20131023
  Transmission Date: 20140711
  Serious: No
  Sender: FDA-Public Use
  Company Number: US-BAYER-2013-128309

PATIENT
  Age: 25 Year
  Sex: Female

DRUGS (1)
  1. MIRENA [Suspect]
     Indication: CONTRACEPTION
     Dosage: UNK
     Route: 015
     Dates: start: 201109

REACTIONS (9)
  - Breast tenderness [None]
  - Breast induration [None]
  - Parosmia [None]
  - Nausea [None]
  - Vomiting [None]
  - Mood swings [None]
  - Fatigue [None]
  - Menstruation delayed [None]
  - Device issue [None]
